FAERS Safety Report 17434846 (Version 2)
Quarter: 2020Q1

REPORT INFORMATION
  Report Type: Spontaneous
  Country: US (occurrence: US)
  Receive Date: 20200219
  Receipt Date: 20200325
  Transmission Date: 20200409
  Serious: Yes (Hospitalization, Other)
  Sender: FDA-Public Use
  Company Number: US-LANNETT COMPANY, INC.-US-2020LAN000045

PATIENT
  Sex: Male

DRUGS (18)
  1. LEVETIRACETAM. [Suspect]
     Active Substance: LEVETIRACETAM
     Indication: SEIZURE
     Dosage: 1 TEASPOON, BID, VIA G-TUBE
     Route: 050
  2. DANTROLENE. [Concomitant]
     Active Substance: DANTROLENE SODIUM
     Dosage: 50 MG, QD (1), EVERY EVENING VIA G-TUBE
     Route: 050
  3. POTASSIUM [Concomitant]
     Active Substance: POTASSIUM
     Indication: MINERAL SUPPLEMENTATION
     Dosage: 20 MEQ, 1 TABLESPOON, BID, VIA G-TUBE
     Route: 050
  4. XARELTO [Concomitant]
     Active Substance: RIVAROXABAN
     Indication: THROMBOSIS
     Dosage: 15 MG, QD, VIA G-TUBE
     Route: 050
  5. GUAIFENESIN. [Concomitant]
     Active Substance: GUAIFENESIN
     Indication: SECRETION DISCHARGE
     Dosage: 600 MG, EVERY 6 HOURS VIA G-TUBE
     Route: 050
  6. ACETYLCYSTEINE                     /00082802/ [Concomitant]
     Active Substance: ACETYLCYSTEINE
     Indication: PRODUCT USED FOR UNKNOWN INDICATION
     Dosage: 4 MG, EVERY 4 HOURS VIA TRACH MASK FOR 14 DAYS
     Route: 055
  7. ALBUTEROL                          /00139501/ [Concomitant]
     Active Substance: ALBUTEROL
     Indication: PRODUCT USED FOR UNKNOWN INDICATION
     Dosage: 2.5 MG, EVERY 3 HOURS VIA TRACH MASK
     Route: 055
  8. LEVEMIR [Concomitant]
     Active Substance: INSULIN DETEMIR
     Indication: TYPE 2 DIABETES MELLITUS
     Dosage: 60 UNITS, BID
     Route: 058
  9. NOVOLOG [Concomitant]
     Active Substance: INSULIN ASPART
     Indication: TYPE 2 DIABETES MELLITUS
     Dosage: 18 UNITS + SLIDING SCALE EVERY 6 HOURS
     Route: 058
  10. SPIRONOLACTONE. [Concomitant]
     Active Substance: SPIRONOLACTONE
     Indication: FLUID RETENTION
     Dosage: 25 MG, BID, VIA G-TUBE
     Route: 050
  11. BUMETANIDE. [Concomitant]
     Active Substance: BUMETANIDE
     Indication: FLUID RETENTION
     Dosage: 2 MG, QD, VIA G-TUBE
     Route: 050
  12. VITAMIN D3 [Concomitant]
     Active Substance: CHOLECALCIFEROL
     Indication: SUPPLEMENTATION THERAPY
     Dosage: UNK, VIA G-TUBE
     Route: 050
  13. OMEPRAZOLE. [Concomitant]
     Active Substance: OMEPRAZOLE
     Indication: GASTROOESOPHAGEAL REFLUX DISEASE
     Dosage: 20 MG, QD, VIA G-TUBE
     Route: 050
  14. ERYTHROMYCIN                       /00020902/ [Concomitant]
     Active Substance: ERYTHROMYCIN
     Indication: SKIN EXFOLIATION
     Dosage: UNK, APPLY TO EYES
     Route: 047
  15. GENTAMICIN. [Concomitant]
     Active Substance: GENTAMICIN
     Indication: PRODUCT USED FOR UNKNOWN INDICATION
     Dosage: 40 MG, BID, VIA TRACH MASK FOR 14 DAYS, RESPIRATORY (INHALATION)
     Route: 055
  16. DANTROLENE. [Concomitant]
     Active Substance: DANTROLENE SODIUM
     Indication: MUSCLE SPASMS
     Dosage: 100 MG, AM/PM VIA G-TUBE
     Route: 050
  17. SCOPOLAMINE                        /00008701/ [Concomitant]
     Active Substance: SCOPOLAMINE
     Indication: SECRETION DISCHARGE
     Dosage: 1.5 MG, APPLY 1 EVERY 72 HOURS
     Route: 065
  18. IPRATROPIUM BROMIDE AND ALBUTEROL SULFATE [Concomitant]
     Active Substance: ALBUTEROL SULFATE\IPRATROPIUM BROMIDE
     Indication: DYSPNOEA
     Dosage: 1 VIAL, TID, VIA TRACH MASK 0.5/3 (2.5 MG)
     Route: 055

REACTIONS (6)
  - Blindness [Not Recovered/Not Resolved]
  - Decubitus ulcer [Not Recovered/Not Resolved]
  - Pneumonia [Not Recovered/Not Resolved]
  - Muscle contracture [Not Recovered/Not Resolved]
  - Wound infection [Not Recovered/Not Resolved]
  - Bedridden [Not Recovered/Not Resolved]

NARRATIVE: CASE EVENT DATE: 2013
